FAERS Safety Report 8967711 (Version 1)
Quarter: 2012Q4

REPORT INFORMATION
  Report Type: Spontaneous
  Country: GB (occurrence: None)
  Receive Date: 20121207
  Receipt Date: 20121207
  Transmission Date: 20130627
  Serious: Yes (Other)
  Sender: FDA-Public Use
  Company Number: DSA_61193_2012

PATIENT
  Sex: Male

DRUGS (2)
  1. DILTIAZEM HYDROCHLORIDE [Suspect]
     Indication: CORONARY ARTERY BYPASS
     Dosage: (60  mg  TID)
(Unknown until not continuing)
  2. SIMVASTATIN (SIMVASTATIN) [Suspect]
     Indication: CORONARY ARTERY BYPASS
     Dosage: (40 mg, daily)
(Unknown until continuing)

REACTIONS (2)
  - Bladder dysfunction [None]
  - Oedema peripheral [None]
